FAERS Safety Report 5141895-6 (Version None)
Quarter: 2006Q4

REPORT INFORMATION
  Report Type: 
  Country: None (occurrence: None)
  Receive Date: 20060919
  Receipt Date: 20060706
  Transmission Date: 20070319
  Serious: No
  Sender: FDA-Public Use
  Company Number: 2006US001275

PATIENT
  Age: 82 Year
  Sex: Female

DRUGS (4)
  1. VESICARE [Suspect]
     Dosage: 2.5 MG, 5 MG, ORAL
     Route: 048
  2. BENEFIBER (CYAMOPSIS TETRAGONOLOBA GUM) [Concomitant]
  3. PAROXETINE (PAROXETINE HYDROCHLORIDE) [Concomitant]
  4. FOSAMAX [Concomitant]

REACTIONS (2)
  - CONSTIPATION [None]
  - NAUSEA [None]
